FAERS Safety Report 10674162 (Version 1)
Quarter: 2014Q4

REPORT INFORMATION
  Report Type: Spontaneous
  Country: US (occurrence: None)
  Receive Date: 20141223
  Receipt Date: 20141223
  Transmission Date: 20150529
  Serious: No
  Sender: FDA-Public Use
  Company Number: None

PATIENT
  Age: 58 Year
  Sex: Female

DRUGS (2)
  1. TACROIMUS 1MG CAP [Suspect]
     Active Substance: TACROLIMUS
     Route: 048
     Dates: start: 20131125
  2. MYCOPHENOLIC [Suspect]
     Active Substance: MYCOPHENOLIC ACID
     Dates: start: 20131125

REACTIONS (2)
  - Tremor [None]
  - Nausea [None]

NARRATIVE: CASE EVENT DATE: 20141201
